FAERS Safety Report 8589923-X (Version None)
Quarter: 2012Q3

REPORT INFORMATION
  Report Type: 
  Country: None (occurrence: None)
  Receive Date: 20120813
  Receipt Date: 20120802
  Transmission Date: 20120928
  Serious: No
  Sender: FDA-Public Use
  Company Number: US-ASTRAZENECA-2012SE55150

PATIENT
  Age: 65 Year
  Sex: Female

DRUGS (4)
  1. CRESTOR [Suspect]
     Route: 048
  2. CRESTOR [Suspect]
     Route: 048
  3. NEXIUM [Concomitant]
  4. VITAMIN TAB [Concomitant]

REACTIONS (3)
  - BLOOD TRIGLYCERIDES ABNORMAL [None]
  - ADVERSE DRUG REACTION [None]
  - INTENTIONAL DRUG MISUSE [None]
